FAERS Safety Report 20429198 (Version 1)
Quarter: 2022Q1

REPORT INFORMATION
  Report Type: Other
  Country: PL (occurrence: PL)
  Receive Date: 20220204
  Receipt Date: 20220204
  Transmission Date: 20220423
  Serious: Yes (Other)
  Sender: FDA-Public Use
  Company Number: PL-RECORDATI-2021003777

PATIENT

DRUGS (6)
  1. PASIREOTIDE [Suspect]
     Active Substance: PASIREOTIDE
     Indication: Acromegaly
     Dosage: 40 MILLIGRAM, EVERY 28 DAYS
     Route: 030
  2. PASIREOTIDE [Suspect]
     Active Substance: PASIREOTIDE
     Indication: Gigantism
     Dosage: 60 MILLIGRAM, EVERY 28 DAYS
     Route: 030
  3. PASIREOTIDE [Suspect]
     Active Substance: PASIREOTIDE
     Indication: Familial acromegaly
     Dosage: 20 MILLIGRAM, EVERY 28 DAYS
     Route: 030
  4. PASIREOTIDE [Suspect]
     Active Substance: PASIREOTIDE
     Indication: Albright^s disease
  5. METFORMIN [Concomitant]
     Active Substance: METFORMIN HYDROCHLORIDE
     Indication: Diabetes mellitus
  6. INSULIN NOS [Concomitant]
     Active Substance: INSULIN NOS
     Indication: Diabetes mellitus

REACTIONS (12)
  - Biliary obstruction [Unknown]
  - Cholecystitis acute [Unknown]
  - Bradycardia [Recovered/Resolved]
  - Insulin-like growth factor increased [Unknown]
  - Blood glucose increased [Unknown]
  - Abdominal pain [Unknown]
  - Diarrhoea [Unknown]
  - Flatulence [Unknown]
  - Alopecia [Unknown]
  - Cholelithiasis [Unknown]
  - Cholelithiasis [Unknown]
  - Therapeutic product effect incomplete [Recovered/Resolved]
